FAERS Safety Report 5341998-7 (Version None)
Quarter: 2007Q2

REPORT INFORMATION
  Report Type: 
  Country: None (occurrence: None)
  Receive Date: 20070530
  Receipt Date: 20070530
  Transmission Date: 20071010
  Serious: Yes (Hospitalization)
  Sender: FDA-Public Use
  Company Number: None

PATIENT
  Age: 30 Year
  Sex: Male

DRUGS (2)
  1. RISPERIDONE [Suspect]
     Indication: BIPOLAR I DISORDER
     Dosage: 25MG OTHER IM
     Route: 030
     Dates: start: 20070412, end: 20070417
  2. RISPERIDONE [Suspect]
     Dosage: 1MG EVERY DAY PO
     Route: 048

REACTIONS (1)
  - DYSTONIA [None]
